FAERS Safety Report 9451142 (Version 2)
Quarter: 2013Q3

REPORT INFORMATION
  Report Type: Report from Study
  Country: BR (occurrence: BR)
  Receive Date: 20130809
  Receipt Date: 20130823
  Transmission Date: 20140515
  Serious: Yes (Disabling, Other)
  Sender: FDA-Public Use
  Company Number: BR-ABBOTT-13P-020-1129535-00

PATIENT
  Sex: Male
  Weight: 76 kg

DRUGS (5)
  1. HUMIRA [Suspect]
     Indication: PSORIASIS
     Route: 058
     Dates: start: 20120626, end: 20130515
  2. HUMIRA [Suspect]
     Indication: ARTHRITIS
     Route: 058
     Dates: start: 20130712
  3. HUMIRA [Suspect]
     Indication: PSORIATIC ARTHROPATHY
  4. PREDNISONE [Suspect]
     Indication: ARTHRITIS
     Dosage: 5 OR 10MG DAILY
     Dates: start: 2008, end: 2013
  5. UNKNOWN ANALGESIC [Concomitant]
     Indication: PRODUCT USED FOR UNKNOWN INDICATION

REACTIONS (3)
  - Bone erosion [Unknown]
  - Psoriatic arthropathy [Unknown]
  - Arthropathy [Unknown]
